FAERS Safety Report 25725689 (Version 1)
Quarter: 2025Q3

REPORT INFORMATION
  Report Type: Spontaneous
  Country: US (occurrence: US)
  Receive Date: 20250826
  Receipt Date: 20250826
  Transmission Date: 20251020
  Serious: Yes (Other)
  Sender: BAYER HEALTHCARE PHARMACEUTICALS INC.
  Company Number: US-BAYER-2025A109627

PATIENT
  Age: 74 Year
  Sex: Female
  Weight: 82.993 kg

DRUGS (27)
  1. RIOCIGUAT [Suspect]
     Active Substance: RIOCIGUAT
     Indication: Pulmonary arterial hypertension
  2. TYVASO DPI [Suspect]
     Active Substance: TREPROSTINIL
     Indication: Pulmonary arterial hypertension
     Dosage: 16 ?G, QID
     Dates: start: 20240819
  3. OPSUMIT [Suspect]
     Active Substance: MACITENTAN
     Indication: Pulmonary arterial hypertension
     Dates: start: 2025, end: 2025
  4. OPSUMIT [Suspect]
     Active Substance: MACITENTAN
     Indication: Pulmonary arterial hypertension
     Dates: start: 2025, end: 2025
  5. SOTATERCEPT [Suspect]
     Active Substance: SOTATERCEPT
     Dates: start: 202407
  6. TREPROSTINIL [Concomitant]
     Active Substance: TREPROSTINIL
     Dates: start: 20240819
  7. TADALAFIL [Concomitant]
     Active Substance: TADALAFIL
  8. CLONIDINE HYDROCHLORIDE [Concomitant]
     Active Substance: CLONIDINE HYDROCHLORIDE
  9. Omega [Concomitant]
  10. FIBER LAX [Concomitant]
     Active Substance: CALCIUM POLYCARBOPHIL
  11. COREG [Concomitant]
     Active Substance: CARVEDILOL
  12. ROSUVASTATIN CALCIUM [Concomitant]
     Active Substance: ROSUVASTATIN CALCIUM
  13. HYDROXYZINE HYDROCHLORIDE [Concomitant]
     Active Substance: HYDROXYZINE HYDROCHLORIDE
  14. PROTONIX [Concomitant]
     Active Substance: PANTOPRAZOLE SODIUM
  15. HYDROXYCHLOROQUINE SULFATE [Concomitant]
     Active Substance: HYDROXYCHLOROQUINE SULFATE
  16. LEVOTHYROXINE SODIUM [Concomitant]
     Active Substance: LEVOTHYROXINE SODIUM
  17. MELATONIN [Concomitant]
     Active Substance: MELATONIN
  18. VITAMINS [Concomitant]
     Active Substance: VITAMINS
  19. HYDROCORTISONE [Concomitant]
     Active Substance: HYDROCORTISONE
  20. TRAZODONE HCL [Concomitant]
     Active Substance: TRAZODONE HYDROCHLORIDE
  21. Acetyl-l-carnitine HCL [Concomitant]
  22. DIETARY SUPPLEMENT [Concomitant]
     Active Substance: DIETARY SUPPLEMENT
  23. HYDRALAZINE HCL [Concomitant]
     Active Substance: HYDRALAZINE HYDROCHLORIDE
  24. ENTRESTO [Concomitant]
     Active Substance: SACUBITRIL\VALSARTAN
  25. TYLENOL [Concomitant]
     Active Substance: ACETAMINOPHEN
  26. PREDNISONE [Concomitant]
     Active Substance: PREDNISONE
  27. NOXZEMA [Concomitant]
     Active Substance: SALICYLIC ACID

REACTIONS (7)
  - Blood pressure systolic increased [Recovered/Resolved]
  - Rash pruritic [Recovered/Resolved]
  - Fungal skin infection [Recovered/Resolved]
  - Scratch [Recovered/Resolved]
  - Urticaria [Recovered/Resolved]
  - Abdominal distension [Recovered/Resolved]
  - Headache [None]

NARRATIVE: CASE EVENT DATE: 20240101
